FAERS Safety Report 18591745 (Version 1)
Quarter: 2020Q4

REPORT INFORMATION
  Report Type: Spontaneous
  Country: DE (occurrence: DE)
  Receive Date: 20201208
  Receipt Date: 20201208
  Transmission Date: 20210114
  Serious: Yes (Hospitalization, Other)
  Sender: FDA-Public Use
  Company Number: DE-SA-2020SA351027

PATIENT

DRUGS (7)
  1. SPIRONOLACTONE. [Suspect]
     Active Substance: SPIRONOLACTONE
     Indication: PRODUCT USED FOR UNKNOWN INDICATION
     Dosage: 1 DF, QD
     Route: 065
  2. TORASEMIDE [Suspect]
     Active Substance: TORSEMIDE
     Indication: PRODUCT USED FOR UNKNOWN INDICATION
     Dosage: 1 DF, QD
     Route: 065
  3. SIMVASTATIN. [Suspect]
     Active Substance: SIMVASTATIN
     Indication: PRODUCT USED FOR UNKNOWN INDICATION
     Dosage: 1 DF, QD
     Route: 065
  4. TAMSULOSIN HYDROCHLORIDE. [Suspect]
     Active Substance: TAMSULOSIN HYDROCHLORIDE
     Indication: PRODUCT USED FOR UNKNOWN INDICATION
     Dosage: UNK UNK, QD (ONCE IN DAY)
     Route: 065
  5. BISOPROLOL FUMARATE. [Suspect]
     Active Substance: BISOPROLOL FUMARATE
     Indication: PRODUCT USED FOR UNKNOWN INDICATION
     Dosage: UNK UNK, QD
     Route: 065
  6. METFORMIN HYDROCHLORIDE. [Suspect]
     Active Substance: METFORMIN HYDROCHLORIDE
     Indication: PRODUCT USED FOR UNKNOWN INDICATION
     Dosage: 500 MG
     Route: 065
     Dates: start: 2009, end: 2016
  7. ACETYLSALICYLIC ACID [Suspect]
     Active Substance: ASPIRIN
     Indication: PRODUCT USED FOR UNKNOWN INDICATION
     Dosage: 1 DF, QD
     Route: 065

REACTIONS (18)
  - Fluid retention [Recovering/Resolving]
  - C-reactive protein increased [Recovered/Resolved]
  - Dyspnoea exertional [Recovering/Resolving]
  - Weight increased [Recovered/Resolved]
  - Pleural effusion [Recovering/Resolving]
  - Coronary artery disease [Unknown]
  - Pulmonary oedema [Recovering/Resolving]
  - Ischaemic cardiomyopathy [Recovering/Resolving]
  - Umbilical hernia [Unknown]
  - Drug interaction [Recovering/Resolving]
  - Cardiac failure [Recovering/Resolving]
  - Body temperature increased [Recovered/Resolved]
  - Helicobacter test positive [Unknown]
  - Ejection fraction decreased [Recovering/Resolving]
  - Oedema peripheral [Recovering/Resolving]
  - Duodenal ulcer [Unknown]
  - Gastrointestinal angiectasia [Unknown]
  - N-terminal prohormone brain natriuretic peptide increased [Recovering/Resolving]
